FAERS Safety Report 4962998-2 (Version None)
Quarter: 2006Q2

REPORT INFORMATION
  Report Type: 
  Country: None (occurrence: None)
  Receive Date: 20060405
  Receipt Date: 20060324
  Transmission Date: 20061013
  Serious: Yes (Other)
  Sender: FDA-Public Use
  Company Number: US-JNJFOC-20060301325

PATIENT
  Sex: Male
  Weight: 116.12 kg

DRUGS (3)
  1. REMICADE [Suspect]
     Dosage: TOTAL 3 DOSES RECEIVED
     Route: 042
  2. DIOVAN [Concomitant]
  3. DOXEPIN [Concomitant]
     Dosage: AT HOURS OF SLEEP AS NEEDED

REACTIONS (2)
  - PULMONARY TUBERCULOSIS [None]
  - TUBERCULOSIS [None]
